FAERS Safety Report 6152329-7 (Version None)
Quarter: 2009Q2

REPORT INFORMATION
  Report Type: 
  Country: None (occurrence: None)
  Receive Date: 20090413
  Receipt Date: 20071015
  Transmission Date: 20091009
  Serious: Yes (Death, Hospitalization)
  Sender: FDA-Public Use
  Company Number: US-ASTRAZENECA-2007UW18609

PATIENT
  Age: 858 Month
  Sex: Female

DRUGS (15)
  1. SEROQUEL [Suspect]
     Dosage: 50-100MG
     Route: 048
     Dates: start: 20021008, end: 20030311
  2. ZYPREXA [Concomitant]
  3. CORTEF [Concomitant]
  4. SYNTHROID [Concomitant]
  5. ASPIRIN [Concomitant]
  6. PREVACID [Concomitant]
  7. REGLAN [Concomitant]
  8. ACTOS [Concomitant]
  9. ROCALTROL [Concomitant]
  10. METHENAMINE MANDELATE [Concomitant]
  11. K-DUR [Concomitant]
  12. COLACE [Concomitant]
  13. ATIVAN [Concomitant]
  14. GLUCOTROL XL [Concomitant]
  15. DIFLUCAN [Concomitant]

REACTIONS (15)
  - ABDOMINAL DISCOMFORT [None]
  - ABDOMINAL DISTENSION [None]
  - ABDOMINAL PAIN [None]
  - ANXIETY [None]
  - ARTHRALGIA [None]
  - CARDIAC FAILURE [None]
  - COGNITIVE DISORDER [None]
  - CONFUSIONAL STATE [None]
  - CORONARY ARTERY DISEASE [None]
  - DIABETES MELLITUS [None]
  - MOOD DISORDER DUE TO A GENERAL MEDICAL CONDITION [None]
  - PAIN IN EXTREMITY [None]
  - TREMOR [None]
  - VASCULAR DEMENTIA [None]
  - WEIGHT INCREASED [None]
